FAERS Safety Report 23289821 (Version 7)
Quarter: 2024Q2

REPORT INFORMATION
  Report Type: Spontaneous
  Country: US (occurrence: US)
  Receive Date: 20231212
  Receipt Date: 20240507
  Transmission Date: 20240715
  Serious: Yes (Other)
  Sender: FDA-Public Use
  Company Number: US-PFIZER INC-2021881408

PATIENT
  Age: 66 Year
  Sex: Female
  Weight: 56 kg

DRUGS (7)
  1. IBRANCE [Suspect]
     Active Substance: PALBOCICLIB
     Indication: Breast cancer metastatic
     Dosage: 1 TAB ON DAYS 1-12 OF 42 DAYS CYCLE 3 WK ON 3 WK OFF/ 1 TAB (S) PO (ORALLY) DAILY, INSTR: DAILY FOR
     Route: 048
     Dates: start: 202103
  2. IBRANCE [Suspect]
     Active Substance: PALBOCICLIB
     Dosage: 100 MG DAILY 21 DAYS/OFF 21 DAYS
     Route: 048
     Dates: start: 2021
  3. IBRANCE [Suspect]
     Active Substance: PALBOCICLIB
     Dosage: 1 TAB, DAILY FOR 21 DAYS, THEN OFF FOR 21 DAYS
     Route: 048
     Dates: start: 202107
  4. IBRANCE [Suspect]
     Active Substance: PALBOCICLIB
     Dosage: 1 TAB DAILY FOR 21 DAYS, THEN OFF FOR 21 DAYS
     Route: 048
     Dates: start: 20220621
  5. IBRANCE [Suspect]
     Active Substance: PALBOCICLIB
     Dosage: 100 MG DAILY 21 DAYS/OFF 21 DAYS
     Route: 048
     Dates: start: 2024
  6. XGEVA [Concomitant]
     Active Substance: DENOSUMAB
     Indication: Breast cancer metastatic
     Dosage: UNK
     Dates: start: 2022
  7. LETROZOLE [Concomitant]
     Active Substance: LETROZOLE
     Dosage: 2.5 MG
     Dates: start: 2021

REACTIONS (4)
  - Neutropenia [Unknown]
  - Off label use [Unknown]
  - Incorrect dose administered [Unknown]
  - Osteopenia [Unknown]

NARRATIVE: CASE EVENT DATE: 20210101
